FAERS Safety Report 18109810 (Version 8)
Quarter: 2022Q4

REPORT INFORMATION
  Report Type: Spontaneous
  Country: FI (occurrence: FI)
  Receive Date: 20200804
  Receipt Date: 20221117
  Transmission Date: 20230113
  Serious: Yes (Other)
  Sender: FDA-Public Use
  Company Number: FI-BRISTOL-MYERS SQUIBB COMPANY-BMS-2020-061255

PATIENT
  Age: 77 Year
  Sex: Female

DRUGS (15)
  1. AZTREONAM [Suspect]
     Active Substance: AZTREONAM
     Indication: Product used for unknown indication
     Dosage: UNK
     Route: 065
     Dates: start: 2020
  2. AMIKACIN [Suspect]
     Active Substance: AMIKACIN
     Indication: Product used for unknown indication
     Dosage: UNK
     Route: 065
     Dates: start: 2019
  3. TOBI PODHALER [Suspect]
     Active Substance: TOBRAMYCIN
     Indication: Pneumonia
     Dosage: UNK UNK, BID
     Route: 055
     Dates: start: 20200708, end: 20200708
  4. TOBI PODHALER [Suspect]
     Active Substance: TOBRAMYCIN
     Indication: Pseudomonas infection
     Dosage: 1 DOSAGE FORM, BID
     Route: 055
     Dates: start: 20200807
  5. TOBI PODHALER [Suspect]
     Active Substance: TOBRAMYCIN
     Dosage: 4 DOSAGE FORM (4 WEEKS EVERY MORNING AND EVERY EVENING, THEN 4 THEN WEEKS BREAK AND NEXT 4 WEEKS EVE
     Route: 055
     Dates: start: 20200604
  6. TOBI PODHALER [Suspect]
     Active Substance: TOBRAMYCIN
     Dosage: 4 DOSAGE FORM, BID (4 DOSAGE FORM BID,INHALED TWICE A DAY FOR 28 DAYS, THEN A 28-DAY BREAK)
     Route: 055
     Dates: start: 20190425
  7. TOBI PODHALER [Suspect]
     Active Substance: TOBRAMYCIN
     Dosage: UNK (4X4 TWICW A DAY)
     Route: 055
     Dates: start: 20200610
  8. TOBI PODHALER [Suspect]
     Active Substance: TOBRAMYCIN
     Dosage: 8 DOSAGE FORM
     Route: 055
  9. TOBI PODHALER [Suspect]
     Active Substance: TOBRAMYCIN
     Dosage: UNK (4 DOSAGE FORM BID,INHALED TWICE A DAY FOR 28 DAYS, THEN A 28-DAY BREAK)
     Route: 055
     Dates: start: 20190425
  10. TOBI PODHALER [Suspect]
     Active Substance: TOBRAMYCIN
     Dosage: UNK
     Route: 055
  11. TOBI PODHALER [Suspect]
     Active Substance: TOBRAMYCIN
     Route: 065
     Dates: start: 2020, end: 20200708
  12. NYSTATIN [Concomitant]
     Active Substance: NYSTATIN
     Indication: Product used for unknown indication
     Dosage: 1 MILLIGRAM, QID (1 MILLIGRAM, 4 TIMES A DAY FOR A MONTH)
     Route: 065
     Dates: start: 20190425
  13. DOXIMED [DOXYCYCLINE HYCLATE] [Concomitant]
     Indication: Product used for unknown indication
     Dosage: 150 MILLIGRAM, QD
     Route: 065
     Dates: start: 20200131
  14. CIPROFLOXACIN [Concomitant]
     Active Substance: CIPROFLOXACIN
     Indication: Product used for unknown indication
     Dosage: 250 MILLIGRAM, BID (FOR 14 DAYS)
     Route: 065
     Dates: start: 20200430
  15. AVELOX [Concomitant]
     Active Substance: MOXIFLOXACIN HYDROCHLORIDE
     Indication: Product used for unknown indication
     Dosage: 400 MILLIGRAM, QD
     Route: 065
     Dates: start: 20200410, end: 20200419

REACTIONS (10)
  - Disease recurrence [Unknown]
  - Lung disorder [Unknown]
  - Sputum discoloured [Unknown]
  - Cough [Unknown]
  - Sputum increased [Unknown]
  - Sputum abnormal [Unknown]
  - Haemoptysis [Unknown]
  - Purulent discharge [Unknown]
  - Product use issue [Unknown]
  - Drug resistance [Unknown]

NARRATIVE: CASE EVENT DATE: 20200101
